FAERS Safety Report 4352304-9 (Version None)
Quarter: 2004Q2

REPORT INFORMATION
  Report Type: 
  Country: None (occurrence: None)
  Receive Date: 20040430
  Receipt Date: 20030710
  Transmission Date: 20050107
  Serious: Yes (Other)
  Sender: FDA-Public Use
  Company Number: 21644 (0)

PATIENT
  Sex: Male

DRUGS (1)
  1. ALDARA [Suspect]
     Indication: SKIN PAPILLOMA
     Dosage: TOPICAL
     Route: 061
     Dates: start: 20030101

REACTIONS (2)
  - APPLICATION SITE PAIN [None]
  - SKIN HYPERPIGMENTATION [None]
